FAERS Safety Report 9045339 (Version 4)
Quarter: 2014Q3

REPORT INFORMATION
  Report Type: Spontaneous
  Country: US (occurrence: US)
  Receive Date: 20130131
  Receipt Date: 20140820
  Transmission Date: 20150326
  Serious: Yes (Disabling)
  Sender: FDA-Public Use
  Company Number: US-009507513-1301USA014638

PATIENT
  Sex: Male
  Weight: 63.49 kg

DRUGS (1)
  1. PROPECIA [Suspect]
     Active Substance: FINASTERIDE
     Indication: ANDROGENETIC ALOPECIA
     Dosage: 1 MG, QD
     Route: 048
     Dates: start: 20100926, end: 201101

REACTIONS (5)
  - Anxiety [Unknown]
  - Phimosis [Unknown]
  - Erectile dysfunction [Unknown]
  - Skin operation [Unknown]
  - Frenulum breve [Unknown]

NARRATIVE: CASE EVENT DATE: 201010
